FAERS Safety Report 16801455 (Version 1)
Quarter: 2019Q3

REPORT INFORMATION
  Report Type: Report from Study
  Country: US (occurrence: US)
  Receive Date: 20190912
  Receipt Date: 20190912
  Transmission Date: 20191005
  Serious: Yes (Hospitalization, Other)
  Sender: FDA-Public Use
  Company Number: PHHY2019US208465

PATIENT
  Age: 48 Year
  Sex: Female
  Weight: 85 kg

DRUGS (7)
  1. EXEMESTANE. [Suspect]
     Active Substance: EXEMESTANE
     Indication: BREAST CANCER METASTATIC
     Dosage: 2.5 MG, QD
     Route: 065
     Dates: start: 20190701
  2. BETAMETHASONE. [Concomitant]
     Active Substance: BETAMETHASONE
     Indication: RASH
     Dosage: UNK
     Route: 061
  3. DURAGESIC [Concomitant]
     Active Substance: FENTANYL
     Indication: CANCER PAIN
     Dosage: UNK
     Route: 062
     Dates: start: 20190814
  4. AFINITOR [Suspect]
     Active Substance: EVEROLIMUS
     Indication: BREAST CANCER METASTATIC
     Dosage: 5 MG, QD
     Route: 065
     Dates: start: 20190701
  5. DECADRON [Concomitant]
     Active Substance: DEXAMETHASONE
     Indication: PROPHYLAXIS
     Dosage: UNK
     Route: 048
     Dates: start: 20190701
  6. FASLODEX [Concomitant]
     Active Substance: FULVESTRANT
     Indication: CANCER PAIN
     Dosage: UNK
     Route: 030
     Dates: start: 20190129
  7. PALBOCICLIB [Suspect]
     Active Substance: PALBOCICLIB
     Indication: BREAST CANCER METASTATIC
     Dosage: 100 MG, QD
     Route: 065
     Dates: start: 20190701

REACTIONS (5)
  - Feeling hot [Unknown]
  - Peripheral swelling [Unknown]
  - Cellulitis [Not Recovered/Not Resolved]
  - Pyrexia [Unknown]
  - Neutropenia [Not Recovered/Not Resolved]

NARRATIVE: CASE EVENT DATE: 20190822
